FAERS Safety Report 5315330-9 (Version None)
Quarter: 2007Q2

REPORT INFORMATION
  Report Type: 
  Country: None (occurrence: None)
  Receive Date: 20070502
  Receipt Date: 20070420
  Transmission Date: 20071010
  Serious: Yes (Other)
  Sender: FDA-Public Use
  Company Number: US-PFIZER INC-2007033447

PATIENT
  Sex: Female
  Weight: 47.6 kg

DRUGS (15)
  1. CHANTIX [Suspect]
     Indication: EX-SMOKER
  2. CARDIZEM [Concomitant]
  3. LASIX [Concomitant]
  4. VALTREX [Concomitant]
  5. TOPROL-XL [Concomitant]
  6. PREMARIN [Concomitant]
  7. NEXIUM [Concomitant]
  8. PLAVIX [Concomitant]
  9. ACETYLSALICYLIC ACID SRT [Concomitant]
  10. COZAAR [Concomitant]
  11. ZYRTEC [Concomitant]
  12. SINGULAIR [Concomitant]
  13. LESCOL [Concomitant]
  14. KLOR-CON [Concomitant]
  15. VICODIN [Concomitant]

REACTIONS (3)
  - FIBROMYALGIA [None]
  - GAIT DISTURBANCE [None]
  - MYALGIA [None]
